FAERS Safety Report 20477627 (Version 1)
Quarter: 2022Q1

REPORT INFORMATION
  Report Type: Spontaneous
  Country: US (occurrence: US)
  Receive Date: 20220216
  Receipt Date: 20220216
  Transmission Date: 20220423
  Serious: No
  Sender: FDA-Public Use
  Company Number: US-JNJFOC-20220224142

PATIENT
  Sex: Male

DRUGS (1)
  1. BALVERSA [Suspect]
     Active Substance: ERDAFITINIB
     Indication: Product used for unknown indication
     Dosage: 3 MG TAKE 3 TABLETS BY MOUTH ONCE A DAY
     Route: 048
     Dates: start: 20211229

REACTIONS (1)
  - Abnormal sensation in eye [Unknown]
